FAERS Safety Report 23239802 (Version 2)
Quarter: 2023Q4

REPORT INFORMATION
  Report Type: Spontaneous
  Country: JP (occurrence: JP)
  Receive Date: 20231129
  Receipt Date: 20231222
  Transmission Date: 20240109
  Serious: Yes (Other)
  Sender: FDA-Public Use
  Company Number: JP-BAYER-2023A165617

PATIENT
  Age: 74 Year
  Sex: Male

DRUGS (4)
  1. KERENDIA [Suspect]
     Active Substance: FINERENONE
     Indication: Chronic kidney disease
     Dosage: 1DF DAILY
     Dates: end: 20231105
  2. ICOSAPENT ETHYL [Concomitant]
     Active Substance: ICOSAPENT ETHYL
     Dosage: 900MG DAILY
  3. FEBUXOSTAT [Concomitant]
     Active Substance: FEBUXOSTAT
     Dosage: 20 MG DAILY
  4. ZETIA [Concomitant]
     Active Substance: EZETIMIBE
     Dosage: 10MG DAILY

REACTIONS (4)
  - Sinus arrest [Recovered/Resolved]
  - Malaise [None]
  - Hyperkalaemia [None]
  - Sinus bradycardia [None]

NARRATIVE: CASE EVENT DATE: 20231105
